FAERS Safety Report 6518266-0 (Version None)
Quarter: 2009Q4

REPORT INFORMATION
  Report Type: 
  Country: None (occurrence: None)
  Receive Date: 20091222
  Receipt Date: 20091222
  Transmission Date: 20100525
  Serious: Yes (Other)
  Sender: FDA-Public Use
  Company Number: None

PATIENT
  Age: 63 Year
  Sex: Male
  Weight: 74.8435 kg

DRUGS (1)
  1. LISINOPRIL [Suspect]
     Indication: HYPERTENSION
     Dosage: 40 MG DAILY ORAL
     Route: 048
     Dates: start: 20081101, end: 20090901

REACTIONS (4)
  - BLOOD IRON DECREASED [None]
  - DYSPNOEA [None]
  - FATIGUE [None]
  - PRODUCT SUBSTITUTION ISSUE [None]
